FAERS Safety Report 4554261-9 (Version None)
Quarter: 2005Q1

REPORT INFORMATION
  Report Type: 
  Country: None (occurrence: None)
  Receive Date: 20050111
  Receipt Date: 20050111
  Transmission Date: 20050727
  Serious: No
  Sender: FDA-Public Use
  Company Number: None

PATIENT
  Age: 65 Year
  Sex: Male

DRUGS (1)
  1. PERCOCET [Suspect]
     Dosage: 1 TAB QID PRN PAIN PO
     Route: 048
     Dates: start: 20041123, end: 20041226

REACTIONS (1)
  - PRURITUS [None]
